FAERS Safety Report 20912717 (Version 1)
Quarter: 2022Q2

REPORT INFORMATION
  Report Type: Report from Study
  Country: US (occurrence: US)
  Receive Date: 20220603
  Receipt Date: 20220603
  Transmission Date: 20220720
  Serious: Yes (Hospitalization, Other)
  Sender: FDA-Public Use
  Company Number: US-UCBSA-2022024072

PATIENT
  Sex: Female
  Weight: 82 kg

DRUGS (1)
  1. LACOSAMIDE [Interacting]
     Active Substance: LACOSAMIDE
     Indication: Seizure
     Dosage: 100MG
     Route: 048
     Dates: end: 2022

REACTIONS (3)
  - Hospitalisation [Recovered/Resolved]
  - Generalised tonic-clonic seizure [Unknown]
  - Drug interaction [Unknown]
